FAERS Safety Report 25554141 (Version 2)
Quarter: 2025Q3

REPORT INFORMATION
  Report Type: Spontaneous
  Country: EU (occurrence: EU)
  Receive Date: 20250715
  Receipt Date: 20250725
  Transmission Date: 20251021
  Serious: Yes (Hospitalization)
  Sender: EMD SERONO INC
  Company Number: EU-Merck Healthcare KGaA-2025034775

PATIENT
  Age: 58 Year
  Sex: Female

DRUGS (1)
  1. LEVOTHYROXINE SODIUM [Suspect]
     Active Substance: LEVOTHYROXINE SODIUM
     Indication: Autoimmune thyroiditis

REACTIONS (5)
  - Coeliac disease [Unknown]
  - Thyroid disorder [Unknown]
  - Influenza [Unknown]
  - Muscle atrophy [Unknown]
  - Addison^s disease [Recovering/Resolving]

NARRATIVE: CASE EVENT DATE: 20241201
